FAERS Safety Report 24595113 (Version 3)
Quarter: 2024Q4

REPORT INFORMATION
  Report Type: Spontaneous
  Country: CA (occurrence: CA)
  Receive Date: 20241108
  Receipt Date: 20241203
  Transmission Date: 20250115
  Serious: Yes (Hospitalization, Other)
  Sender: BIOMARIN
  Company Number: CA-BIOMARINAP-CA-2024-161661

PATIENT

DRUGS (1)
  1. NAGLAZYME [Suspect]
     Active Substance: GALSULFASE
     Indication: Mucopolysaccharidosis VI
     Dosage: 40 MILLIGRAM, QW
     Route: 042
     Dates: start: 20170627

REACTIONS (4)
  - Dysphonia [Recovered/Resolved]
  - Procedural pain [Recovered/Resolved]
  - Weight decreased [Recovered/Resolved]
  - Fear of eating [Recovered/Resolved]

NARRATIVE: CASE EVENT DATE: 20240101
